FAERS Safety Report 5377461-7 (Version None)
Quarter: 2007Q3

REPORT INFORMATION
  Report Type: 
  Country: None (occurrence: None)
  Receive Date: 20070703
  Receipt Date: 20070702
  Transmission Date: 20080115
  Serious: Yes (Death, Hospitalization)
  Sender: FDA-Public Use
  Company Number: HU-JNJFOC-20070602860

PATIENT
  Sex: Male

DRUGS (5)
  1. TOPAMAX [Suspect]
     Indication: LENNOX-GASTAUT SYNDROME
     Route: 048
  2. CISORDINOL [Interacting]
  3. CISORDINOL [Interacting]
     Indication: AGGRESSION
  4. RIVOTRIL [Interacting]
  5. RIVOTRIL [Interacting]
     Indication: DRUG USE FOR UNKNOWN INDICATION

REACTIONS (9)
  - ANOREXIA [None]
  - ASTHENIA [None]
  - BLOOD POTASSIUM DECREASED [None]
  - BRONCHOPNEUMONIA [None]
  - DEHYDRATION [None]
  - DRUG INTERACTION [None]
  - HYPOTHERMIA [None]
  - INCONTINENCE [None]
  - SOMNOLENCE [None]
